FAERS Safety Report 24719159 (Version 2)
Quarter: 2025Q1

REPORT INFORMATION
  Report Type: Report from Study
  Country: CA (occurrence: CA)
  Receive Date: 20241210
  Receipt Date: 20250108
  Transmission Date: 20250408
  Serious: Yes (Hospitalization)
  Sender: ABBVIE
  Company Number: CA-ABBVIE-6037056

PATIENT
  Age: 49 Year
  Sex: Male

DRUGS (1)
  1. RINVOQ [Suspect]
     Active Substance: UPADACITINIB
     Indication: Colitis ulcerative
     Dosage: FORM STRENGTH: 30 MILLIGRAM?LAST ADMIN DATE: 2024
     Route: 048
     Dates: start: 20230918

REACTIONS (3)
  - Localised infection [Unknown]
  - Myelitis [Unknown]
  - Malaise [Unknown]

NARRATIVE: CASE EVENT DATE: 20240101
